FAERS Safety Report 26198874 (Version 1)
Quarter: 2025Q4

REPORT INFORMATION
  Report Type: Spontaneous
  Country: US (occurrence: US)
  Receive Date: 20251225
  Receipt Date: 20251225
  Transmission Date: 20260118
  Serious: No
  Sender: ACCORD
  Company Number: US-Accord-461929

PATIENT
  Age: 31 Year
  Sex: Female

DRUGS (1)
  1. BUPROPION HYDROCHLORIDE [Suspect]
     Active Substance: BUPROPION HYDROCHLORIDE
     Indication: Perinatal depression
     Dosage: STRENGTH: 300 MG

REACTIONS (6)
  - Diarrhoea [Unknown]
  - Abdominal pain upper [Unknown]
  - Nausea [Unknown]
  - Dyspepsia [Unknown]
  - Flatulence [Unknown]
  - Maternal exposure during breast feeding [Unknown]
